FAERS Safety Report 10205458 (Version 1)
Quarter: 2014Q2

REPORT INFORMATION
  Report Type: Spontaneous
  Country: US (occurrence: US)
  Receive Date: 20140529
  Receipt Date: 20140529
  Transmission Date: 20141212
  Serious: Yes (Life-Threatening, Hospitalization)
  Sender: FDA-Public Use
  Company Number: GXBR2014US001324

PATIENT
  Age: 72 Year
  Sex: Female

DRUGS (4)
  1. REGONOL [Suspect]
     Indication: MYASTHENIA GRAVIS
     Dosage: 30 MG, UNK
     Route: 042
     Dates: start: 20120921
  2. MESTINON [Concomitant]
     Indication: MYASTHENIA GRAVIS
     Dosage: 30 MG, TID
  3. IMMUNOGLOBULIN I.V [Concomitant]
     Indication: MYASTHENIA GRAVIS
     Dosage: UNK DF, UNK
  4. PREDNISONE [Concomitant]
     Indication: MYASTHENIA GRAVIS
     Dosage: 10 MG, QD
     Dates: start: 201202

REACTIONS (13)
  - Abdominal pain upper [Recovering/Resolving]
  - Blood pressure decreased [Unknown]
  - Incontinence [Recovered/Resolved]
  - Asthenia [Recovering/Resolving]
  - Gastric haemorrhage [Recovered/Resolved]
  - Splenic haemorrhage [Recovered/Resolved]
  - Pancreatic haemorrhage [Recovered/Resolved]
  - Incision site abscess [Recovering/Resolving]
  - Post procedural fistula [Unknown]
  - Peritonitis [Unknown]
  - Renal failure [Unknown]
  - Clostridium difficile infection [Unknown]
  - Overdose [Recovered/Resolved]
